FAERS Safety Report 12616264 (Version 1)
Quarter: 2016Q3

REPORT INFORMATION
  Report Type: Spontaneous
  Country: US (occurrence: US)
  Receive Date: 20160802
  Receipt Date: 20160802
  Transmission Date: 20161109
  Serious: No
  Sender: FDA-Public Use
  Company Number: US-BAYER-2016-141484

PATIENT
  Age: 67 Year
  Sex: Female
  Weight: 56.69 kg

DRUGS (4)
  1. ZEGERID OTC CAPSULES [Suspect]
     Active Substance: OMEPRAZOLE\SODIUM BICARBONATE
     Indication: ABDOMINAL PAIN UPPER
  2. ZEGERID OTC CAPSULES [Suspect]
     Active Substance: OMEPRAZOLE\SODIUM BICARBONATE
     Indication: NAUSEA
  3. BACLOFEN. [Concomitant]
     Active Substance: BACLOFEN
     Indication: GASTRIC DISORDER
     Dosage: 0.5 DF, BID
     Route: 048
  4. ZEGERID OTC CAPSULES [Suspect]
     Active Substance: OMEPRAZOLE\SODIUM BICARBONATE
     Indication: DIARRHOEA
     Dosage: 1 DF, BID
     Route: 048

REACTIONS (1)
  - Product use issue [None]
